FAERS Safety Report 9177960 (Version 1)
Quarter: 2013Q1

REPORT INFORMATION
  Report Type: Spontaneous
  Country: US (occurrence: None)
  Receive Date: 20130315
  Receipt Date: 20130315
  Transmission Date: 20140127
  Serious: Yes (Congenital Anomaly)
  Sender: FDA-Public Use
  Company Number: 1632608

PATIENT
  Sex: Female
  Weight: 1 kg

DRUGS (2)
  1. (METHOTREXATE) [Suspect]
     Indication: PRODUCT USED FOR UNKNOWN INDICATION
     Route: 064
  2. (MISOPROSTOL) [Suspect]
     Route: 064

REACTIONS (24)
  - Premature baby [None]
  - Maternal drugs affecting foetus [None]
  - Skull malformation [None]
  - Microcephaly [None]
  - Dysmorphism [None]
  - Hypertelorism of orbit [None]
  - Congenital eye disorder [None]
  - Microphthalmos [None]
  - Syndactyly [None]
  - Micrognathia [None]
  - Cardiomegaly [None]
  - Congenital nose malformation [None]
  - Congenital musculoskeletal anomaly [None]
  - Brachydactyly [None]
  - Congenital foot malformation [None]
  - Anterior displaced anus [None]
  - Congenital deformity of clavicle [None]
  - Pulmonary malformation [None]
  - Brain malformation [None]
  - Patent ductus arteriosus [None]
  - Ascites [None]
  - Drug interaction [None]
  - Heart disease congenital [None]
  - Low set ears [None]
